FAERS Safety Report 6540084-8 (Version None)
Quarter: 2010Q1

REPORT INFORMATION
  Report Type: 
  Country: None (occurrence: None)
  Receive Date: 20100115
  Receipt Date: 20100106
  Transmission Date: 20100710
  Serious: Yes (Hospitalization)
  Sender: FDA-Public Use
  Company Number: NO-ABBOTT-09P-122-0615149-00

PATIENT
  Sex: Female
  Weight: 46 kg

DRUGS (2)
  1. HUMIRA [Suspect]
     Indication: CROHN'S DISEASE
     Route: 058
     Dates: start: 20090925
  2. YASMIN [Concomitant]
     Indication: CONTRACEPTION
     Dates: start: 20090918, end: 20091119

REACTIONS (2)
  - PALPITATIONS [None]
  - SLEEP DISORDER [None]
